FAERS Safety Report 14999591 (Version 1)
Quarter: 2018Q2

REPORT INFORMATION
  Report Type: Spontaneous
  Country: US (occurrence: US)
  Receive Date: 20180522
  Receipt Date: 20180522
  Transmission Date: 20180711
  Serious: Yes (Death, Life-Threatening, Hospitalization, Disabling)
  Sender: FDA-Public Use
  Company Number: None

PATIENT
  Age: 50 Year
  Sex: Male
  Weight: 90 kg

DRUGS (1)
  1. KLONOPIN [Suspect]
     Active Substance: CLONAZEPAM
     Indication: ANXIETY
     Dosage: ?          QUANTITY:3 TABLET(S);OTHER FREQUENCY:AS DIRECTED;?
     Route: 048
     Dates: start: 20120101, end: 20180108

REACTIONS (10)
  - Mental impairment [None]
  - Blood sodium decreased [None]
  - Drug prescribing error [None]
  - Neuralgia [None]
  - Completed suicide [None]
  - Drug administration error [None]
  - Seizure [None]
  - Alcoholism [None]
  - Pain [None]
  - Loss of consciousness [None]

NARRATIVE: CASE EVENT DATE: 20180108
